FAERS Safety Report 24751785 (Version 2)
Quarter: 2025Q1

REPORT INFORMATION
  Report Type: Report from Study
  Country: ES (occurrence: ES)
  Receive Date: 20241219
  Receipt Date: 20250123
  Transmission Date: 20250408
  Serious: No
  Sender: SANDOZ
  Company Number: ES-SANDOZ-SDZ2024ES103120

PATIENT
  Age: 3 Year
  Sex: Male
  Weight: 11.5 kg

DRUGS (1)
  1. OMNITROPE [Suspect]
     Active Substance: SOMATROPIN
     Indication: Dyschondrosteosis
     Dosage: 0.45 MG, Q24H
     Route: 058
     Dates: start: 20241212

REACTIONS (1)
  - Vision blurred [Recovered/Resolved]

NARRATIVE: CASE EVENT DATE: 20241214
